FAERS Safety Report 7780699-2 (Version None)
Quarter: 2011Q3

REPORT INFORMATION
  Report Type: 
  Country: None (occurrence: None)
  Receive Date: 20110927
  Receipt Date: 20110329
  Transmission Date: 20111222
  Serious: No
  Sender: FDA-Public Use
  Company Number: US-BRISTOL-MYERS SQUIBB COMPANY-15642473

PATIENT
  Age: 66 Year
  Sex: Female
  Weight: 91 kg

DRUGS (7)
  1. AVAPRO [Suspect]
     Indication: HYPERTENSION
     Dates: start: 19910101
  2. LOSARTAN POTASSIUM AND HYDROCHLOROTHIAZIDE [Concomitant]
     Indication: HYPERTENSION
     Dosage: 1DF=100-25 MG.
  3. FENOFIBRATE [Concomitant]
  4. METOPROLOL SUCCINATE [Concomitant]
     Dosage: 1 DF=1/2 TABS DAILY.METOPROLOL SUCCINATE 50 MG 1/2 TABLET DAILY
  5. VITAMIN D [Concomitant]
  6. AVALIDE [Suspect]
     Indication: HYPERTENSION
     Dosage: 1 DF=300/25 MG.
  7. VITAMIN TAB [Concomitant]

REACTIONS (4)
  - COUGH [None]
  - HEADACHE [None]
  - BLEPHAROSPASM [None]
  - DRUG INEFFECTIVE [None]
